FAERS Safety Report 9798685 (Version 1)
Quarter: 2014Q1

REPORT INFORMATION
  Report Type: Spontaneous
  Country: US (occurrence: US)
  Receive Date: 20140106
  Receipt Date: 20140106
  Transmission Date: 20141002
  Serious: No
  Sender: FDA-Public Use
  Company Number: US-GILEAD-2010-0029792

PATIENT
  Age: 60 Year
  Sex: Female

DRUGS (11)
  1. LETAIRIS [Suspect]
     Indication: PULMONARY ARTERIAL HYPERTENSION
     Route: 048
     Dates: start: 20100524, end: 20100531
  2. REVATIO [Concomitant]
  3. PERCOCET [Concomitant]
  4. CELEBREX [Concomitant]
  5. TRIMETHOPRIM [Concomitant]
  6. PREDNISONE [Concomitant]
  7. LOTREL [Concomitant]
  8. PRISTIQ [Concomitant]
  9. SPIRIVA [Concomitant]
  10. XOPENEX [Concomitant]
  11. PREMPRO [Concomitant]

REACTIONS (1)
  - Hypersensitivity [Recovering/Resolving]
